FAERS Safety Report 20877266 (Version 1)
Quarter: 2022Q2

REPORT INFORMATION
  Report Type: Spontaneous
  Country: US (occurrence: US)
  Receive Date: 20220526
  Receipt Date: 20220526
  Transmission Date: 20220721
  Serious: No
  Sender: FDA-Public Use
  Company Number: US-BAYER-2022A074651

PATIENT
  Age: 29 Year
  Sex: Female

DRUGS (1)
  1. MIRENA [Suspect]
     Active Substance: LEVONORGESTREL
     Dosage: 20?G/DAY
     Route: 015
     Dates: start: 20210825, end: 20211102

REACTIONS (6)
  - Mood swings [None]
  - Feeling abnormal [None]
  - Feeling abnormal [None]
  - Pain in extremity [None]
  - Memory impairment [None]
  - Procedural pain [None]

NARRATIVE: CASE EVENT DATE: 20210801
